FAERS Safety Report 8808671 (Version 3)
Quarter: 2013Q1

REPORT INFORMATION
  Report Type: Spontaneous
  Country: US (occurrence: None)
  Receive Date: 20120921
  Receipt Date: 20121116
  Transmission Date: 20140127
  Serious: Yes (Other)
  Sender: FDA-Public Use
  Company Number: 2012033370

PATIENT
  Sex: Female
  Weight: 49.9 kg

DRUGS (8)
  1. HIZENTRA [Suspect]
     Indication: PRIMARY IMMUNODEFICIENCY SYNDROME
     Dosage: INITIATED TREATMENT MAR-2011.
     Route: 058
     Dates: start: 20120912, end: 20120912
  2. RECLAST [Concomitant]
  3. ALBUTEROL (SALBUTAMOL) [Concomitant]
  4. ADVAIR 500/50 (SERETIDE /01420901/) [Concomitant]
  5. XYZAL (LEVOCETIRIZINE DIHYDROCHLORIDE) [Concomitant]
  6. MULTIVITAMIN (DAILY MULTIVITAMIN) [Concomitant]
  7. CALCIUM W/ VIT D (OYSTER SHELL CALCIUM WITH VITAMIN D/01675501/) [Concomitant]
  8. PERFORMIST (FORMOTEROL FUMARATE) [Concomitant]

REACTIONS (10)
  - Infusion site pruritus [None]
  - Headache [None]
  - Dizziness [None]
  - Decreased appetite [None]
  - Influenza like illness [None]
  - Infusion site erythema [None]
  - Back pain [None]
  - Neck pain [None]
  - Musculoskeletal pain [None]
  - Blood potassium decreased [None]
